FAERS Safety Report 11105284 (Version 2)
Quarter: 2015Q2

REPORT INFORMATION
  Report Type: Spontaneous
  Country: TR (occurrence: TR)
  Receive Date: 20150512
  Receipt Date: 20150601
  Transmission Date: 20150821
  Serious: Yes (Other)
  Sender: FDA-Public Use
  Company Number: TR-MYLANLABS-2015M1015404

PATIENT

DRUGS (2)
  1. PREDNISOLONE. [Suspect]
     Active Substance: PREDNISOLONE
     Indication: EOSINOPHILIC PNEUMONIA
     Dosage: 1 MG/KG, QD
     Route: 065
  2. FLUTICASONE PROPIONATE W/SALMETEROL [Suspect]
     Active Substance: FLUTICASONE PROPIONATE\SALMETEROL XINAFOATE
     Indication: EOSINOPHILIC PNEUMONIA
     Dosage: 500/50 UG TWICE DAILY
     Route: 055

REACTIONS (2)
  - Osteoarthritis [Recovering/Resolving]
  - Joint dislocation [Recovering/Resolving]
